FAERS Safety Report 6052739-2 (Version None)
Quarter: 2009Q1

REPORT INFORMATION
  Report Type: 
  Country: None (occurrence: None)
  Receive Date: 20090127
  Receipt Date: 20090119
  Transmission Date: 20090719
  Serious: Yes (Hospitalization)
  Sender: FDA-Public Use
  Company Number: CA-BAYER-200840702NA

PATIENT
  Age: 61 Year
  Sex: Female
  Weight: 62 kg

DRUGS (12)
  1. SORAFENIB [Suspect]
     Indication: CERVIX CARCINOMA
     Dosage: TOTAL DAILY DOSE: 400 MG  UNIT DOSE: 200 MG
     Route: 048
     Dates: start: 20081113, end: 20081210
  2. CISPLATIN [Suspect]
     Indication: CERVIX CARCINOMA
     Dosage: TOTAL DAILY DOSE: 64.4 MG
     Route: 042
     Dates: start: 20081120, end: 20081204
  3. MAGNESIUM SULFATE [Concomitant]
     Dates: start: 20081210
  4. FLUIDS [Concomitant]
     Dates: start: 20081210
  5. SLOW-K [Concomitant]
     Indication: BLOOD POTASSIUM DECREASED
     Dates: start: 20081217, end: 20081222
  6. CIPROFLOXACIN [Concomitant]
     Indication: URINARY TRACT INFECTION
     Dates: start: 20081225
  7. TAZOCIN [Concomitant]
     Indication: URINARY TRACT INFECTION
     Route: 042
     Dates: start: 20081225, end: 20081229
  8. ANUSOL [Concomitant]
     Dates: start: 20081227
  9. DIMENHYDRINATE [Concomitant]
     Indication: NAUSEA
     Route: 042
     Dates: start: 20081221
  10. DIMENHYDRINATE [Concomitant]
     Route: 048
     Dates: start: 20081221
  11. AMPICILLIN [Concomitant]
     Indication: URINARY TRACT INFECTION
  12. KCL IN NACL [Concomitant]
     Indication: BLOOD POTASSIUM DECREASED
     Route: 042
     Dates: start: 20081231

REACTIONS (3)
  - PLATELET COUNT DECREASED [None]
  - URINARY TRACT INFECTION [None]
  - UROGENITAL FISTULA [None]
